FAERS Safety Report 19973903 (Version 1)
Quarter: 2021Q4

REPORT INFORMATION
  Report Type: Spontaneous
  Country: CA (occurrence: CA)
  Receive Date: 20211020
  Receipt Date: 20211020
  Transmission Date: 20220303
  Serious: Yes (Other)
  Sender: FDA-Public Use
  Company Number: CA-TEVA-2021-CA-1966181

PATIENT
  Age: 46 Year
  Sex: Female
  Weight: 104 kg

DRUGS (2)
  1. METHOTREXATE [Suspect]
     Active Substance: METHOTREXATE
     Indication: Psoriatic arthropathy
     Route: 065
  2. ERELZI [Concomitant]
     Active Substance: ETANERCEPT-SZZS
     Route: 065

REACTIONS (4)
  - Liver injury [Unknown]
  - Musculoskeletal stiffness [Unknown]
  - Pain [Unknown]
  - Synovitis [Unknown]
